FAERS Safety Report 6533917-2 (Version None)
Quarter: 2010Q1

REPORT INFORMATION
  Report Type: 
  Country: None (occurrence: None)
  Receive Date: 20100111
  Receipt Date: 20100107
  Transmission Date: 20100710
  Serious: Yes (Hospitalization)
  Sender: FDA-Public Use
  Company Number: US-B.I. PHARMACEUTICALS,INC./RIDGEFIELD-2010-BP-00225BP

PATIENT
  Age: 88 Year
  Sex: Male

DRUGS (5)
  1. FLOMAX [Suspect]
     Indication: BENIGN PROSTATIC HYPERPLASIA
     Dosage: 0.4 MG
     Route: 048
     Dates: start: 20000101
  2. WARFARIN SODIUM [Concomitant]
     Indication: ATRIAL FIBRILLATION
  3. LASIX [Concomitant]
     Indication: CARDIAC FAILURE CONGESTIVE
  4. CORDARONE [Concomitant]
     Indication: ATRIAL FIBRILLATION
  5. DIGOXIN [Concomitant]
     Indication: CARDIAC FAILURE CONGESTIVE

REACTIONS (4)
  - CARDIAC FAILURE CONGESTIVE [None]
  - HYPOTHYROIDISM [None]
  - NOCTURIA [None]
  - RHINORRHOEA [None]
